FAERS Safety Report 25590652 (Version 1)
Quarter: 2025Q3

REPORT INFORMATION
  Report Type: Report from Study
  Country: CA (occurrence: CA)
  Receive Date: 20250722
  Receipt Date: 20250722
  Transmission Date: 20251021
  Serious: Yes (Other)
  Sender: TAKEDA
  Company Number: CA-TAKEDA-2025TUS064114

PATIENT
  Sex: Male

DRUGS (6)
  1. VEDOLIZUMAB [Suspect]
     Active Substance: VEDOLIZUMAB
     Indication: Colitis ulcerative
  2. PREDNISONE [Concomitant]
     Active Substance: PREDNISONE
  3. CORTISONE [Concomitant]
     Active Substance: CORTISONE
  4. SOLU-MEDROL [Concomitant]
     Active Substance: METHYLPREDNISOLONE SODIUM SUCCINATE
  5. LEVOFLOXACIN [Concomitant]
     Active Substance: LEVOFLOXACIN
  6. FLAGYL [Concomitant]
     Active Substance: METRONIDAZOLE\METRONIDAZOLE HYDROCHLORIDE

REACTIONS (1)
  - Pyoderma gangrenosum [Not Recovered/Not Resolved]
